FAERS Safety Report 8448934-5 (Version None)
Quarter: 2012Q2

REPORT INFORMATION
  Report Type: 
  Country: None (occurrence: None)
  Receive Date: 20120619
  Receipt Date: 20120613
  Transmission Date: 20120825
  Serious: Yes (Hospitalization, Other)
  Sender: FDA-Public Use
  Company Number: JP-GLAXOSMITHKLINE-B0808416A

PATIENT
  Sex: Female

DRUGS (5)
  1. PAXIL [Suspect]
     Indication: DEPRESSION
     Dosage: 20MG PER DAY
     Route: 048
     Dates: start: 20120406, end: 20120516
  2. RIZE [Concomitant]
     Dosage: 10MG PER DAY
     Route: 048
     Dates: start: 20120406, end: 20120516
  3. RIZE [Concomitant]
     Route: 048
     Dates: start: 20120517, end: 20120522
  4. PAXIL [Suspect]
     Route: 048
     Dates: start: 20120516, end: 20120522
  5. FUROSEMIDE [Concomitant]
     Dosage: 20MG PER DAY
     Route: 048
     Dates: start: 20120406, end: 20120516

REACTIONS (3)
  - DIZZINESS POSTURAL [None]
  - BLOOD PRESSURE DECREASED [None]
  - UPPER LIMB FRACTURE [None]
